FAERS Safety Report 25159133 (Version 1)
Quarter: 2025Q2

REPORT INFORMATION
  Report Type: Spontaneous
  Country: FR (occurrence: FR)
  Receive Date: 20250404
  Receipt Date: 20250404
  Transmission Date: 20250716
  Serious: Yes (Hospitalization)
  Sender: TAKEDA
  Company Number: None

PATIENT
  Age: 8 Year
  Sex: Male
  Weight: 28.5 kg

DRUGS (3)
  1. ELAPRASE [Suspect]
     Active Substance: IDURSULFASE
     Indication: Mucopolysaccharidosis II
  2. ELAPRASE [Suspect]
     Active Substance: IDURSULFASE
  3. RISPERIDONE [Suspect]
     Active Substance: RISPERIDONE
     Indication: Mental disorder

REACTIONS (3)
  - Distal intestinal obstruction syndrome [Not Recovered/Not Resolved]
  - Abdominal rigidity [Not Recovered/Not Resolved]
  - Decreased appetite [Not Recovered/Not Resolved]

NARRATIVE: CASE EVENT DATE: 20250308
